FAERS Safety Report 14860974 (Version 1)
Quarter: 2018Q2

REPORT INFORMATION
  Report Type: Spontaneous
  Country: SG (occurrence: SG)
  Receive Date: 20180508
  Receipt Date: 20180508
  Transmission Date: 20180711
  Serious: Yes (Other)
  Sender: FDA-Public Use
  Company Number: SG-BAYER-2018-084308

PATIENT
  Age: 86 Year
  Sex: Male

DRUGS (1)
  1. NEXAVAR [Suspect]
     Active Substance: SORAFENIB
     Indication: HEPATOCELLULAR CARCINOMA
     Dosage: 400 MG, BID
     Route: 048

REACTIONS (6)
  - Palmar-plantar erythrodysaesthesia syndrome [None]
  - Pain of skin [None]
  - Ascites [None]
  - Hepatic failure [None]
  - Oedema peripheral [None]
  - Blister [None]
